FAERS Safety Report 5503930-2 (Version None)
Quarter: 2007Q4

REPORT INFORMATION
  Report Type: 
  Country: None (occurrence: None)
  Receive Date: 20071101
  Receipt Date: 20071022
  Transmission Date: 20080405
  Serious: Yes (Hospitalization, Other)
  Sender: FDA-Public Use
  Company Number: US-ROCHE-511007

PATIENT
  Age: 40 Year
  Sex: Male

DRUGS (4)
  1. PEGASYS [Suspect]
     Dosage: DOSE REPORTED AS 180 MCG/WEEK
     Route: 065
     Dates: start: 20070428, end: 20070810
  2. PEGASYS [Suspect]
     Dosage: DOSE REPORTED AS 135 MCG/WEEK
     Route: 065
     Dates: start: 20070907
  3. RIBAVIRIN [Suspect]
     Route: 065
     Dates: start: 20070428, end: 20070810
  4. RIBAVIRIN [Suspect]
     Route: 065
     Dates: start: 20070907

REACTIONS (8)
  - DEHYDRATION [None]
  - HAEMOGLOBIN DECREASED [None]
  - HEADACHE [None]
  - INSOMNIA [None]
  - RED BLOOD CELL COUNT DECREASED [None]
  - STOMATITIS [None]
  - VIRAL INFECTION [None]
  - WHITE BLOOD CELL COUNT DECREASED [None]
